FAERS Safety Report 23367800 (Version 3)
Quarter: 2024Q2

REPORT INFORMATION
  Report Type: Spontaneous
  Country: JP (occurrence: JP)
  Receive Date: 20240104
  Receipt Date: 20240404
  Transmission Date: 20240715
  Serious: Yes (Hospitalization)
  Sender: FDA-Public Use
  Company Number: JP-Vifor (International) Inc.-VIT-2024-00004

PATIENT
  Sex: Male
  Weight: 59.3 kg

DRUGS (2)
  1. TAVNEOS [Suspect]
     Active Substance: AVACOPAN
     Indication: Anti-neutrophil cytoplasmic antibody positive vasculitis
     Dosage: UNK (60 MG/DAY)
     Route: 048
  2. ADRENAL [Concomitant]
     Active Substance: EPINEPHRINE
     Indication: Anti-neutrophil cytoplasmic antibody positive vasculitis
     Dosage: 7.5 MILLIGRAM, QD

REACTIONS (1)
  - Jaundice [Recovering/Resolving]

NARRATIVE: CASE EVENT DATE: 20231125
